FAERS Safety Report 8959434 (Version 3)
Quarter: 2013Q1

REPORT INFORMATION
  Report Type: Spontaneous
  Country: US (occurrence: US)
  Receive Date: 20121212
  Receipt Date: 20130227
  Transmission Date: 20140127
  Serious: Yes (Other)
  Sender: FDA-Public Use
  Company Number: US-JNJFOC-20121202358

PATIENT
  Age: 57 Year
  Sex: Female
  Weight: 54.89 kg

DRUGS (4)
  1. NUCYNTA [Suspect]
     Indication: PAIN IN EXTREMITY
     Dosage: 90 PILLS, 3 X A DAY
     Route: 048
     Dates: start: 20121126, end: 20121129
  2. LANTUS [Concomitant]
     Indication: TYPE 1 DIABETES MELLITUS
     Route: 065
     Dates: start: 201207
  3. NOVOLOG [Concomitant]
     Indication: TYPE 1 DIABETES MELLITUS
     Route: 065
     Dates: start: 201207, end: 201212
  4. QVAR [Concomitant]
     Indication: ASTHMA
     Dosage: AS NEEDED
     Route: 055

REACTIONS (7)
  - Respiratory failure [Recovered/Resolved]
  - Dyspnoea [Recovered/Resolved]
  - Anger [Recovered/Resolved]
  - Nervousness [Recovered/Resolved]
  - Muscle spasms [Recovered/Resolved]
  - Dizziness [Recovered/Resolved]
  - Nausea [Recovered/Resolved]
